FAERS Safety Report 19626234 (Version 1)
Quarter: 2021Q3

REPORT INFORMATION
  Report Type: Spontaneous
  Country: US (occurrence: US)
  Receive Date: 20210728
  Receipt Date: 20210728
  Transmission Date: 20211014
  Serious: No
  Sender: FDA-Public Use
  Company Number: None

PATIENT
  Age: 73 Year
  Sex: Male

DRUGS (1)
  1. XELODA [Suspect]
     Active Substance: CAPECITABINE
     Route: 048
     Dates: start: 202106

REACTIONS (5)
  - Confusional state [None]
  - Feeling abnormal [None]
  - Adverse drug reaction [None]
  - Therapy interrupted [None]
  - Mental disorder [None]

NARRATIVE: CASE EVENT DATE: 20210728
